FAERS Safety Report 19725320 (Version 1)
Quarter: 2021Q3

REPORT INFORMATION
  Report Type: Spontaneous
  Country: US (occurrence: US)
  Receive Date: 20210819
  Receipt Date: 20210819
  Transmission Date: 20211014
  Serious: Yes (Other)
  Sender: FDA-Public Use
  Company Number: None

PATIENT
  Age: 67 Year
  Sex: Male

DRUGS (25)
  1. TYLENOL EXTRA STRENGTH [Concomitant]
     Active Substance: ACETAMINOPHEN
  2. SILDENAFIL CITRATE. [Concomitant]
     Active Substance: SILDENAFIL CITRATE
  3. BASAGLAR KWIKPEN [Concomitant]
     Active Substance: INSULIN GLARGINE
  4. PEPCID [Concomitant]
     Active Substance: FAMOTIDINE
  5. SERTRALINE HCL [Concomitant]
     Active Substance: SERTRALINE HYDROCHLORIDE
  6. BUMEX [Suspect]
     Active Substance: BUMETANIDE
  7. OMEPRAZOLE. [Concomitant]
     Active Substance: OMEPRAZOLE
  8. BUSPIRONE HYDROCHLORIDE. [Concomitant]
     Active Substance: BUSPIRONE HYDROCHLORIDE
  9. METOPROLOL. [Suspect]
     Active Substance: METOPROLOL
  10. SUCRALFATE. [Concomitant]
     Active Substance: SUCRALFATE
  11. CITALOPRAM HYDROBROMIDE. [Concomitant]
     Active Substance: CITALOPRAM HYDROBROMIDE
  12. METOPROLOL SUCCINATE. [Concomitant]
     Active Substance: METOPROLOL SUCCINATE
  13. VITAMIN D [Concomitant]
     Active Substance: VITAMIN D NOS
  14. SILDENAFIL. [Suspect]
     Active Substance: SILDENAFIL
  15. VENTOLIN HFA [Concomitant]
     Active Substance: ALBUTEROL SULFATE
  16. PANTOPRAZOLE SODIUM. [Concomitant]
     Active Substance: PANTOPRAZOLE SODIUM
  17. FUROSEMIDE. [Concomitant]
     Active Substance: FUROSEMIDE
  18. HYDROXYZINE HYDROCHLORIDE. [Concomitant]
     Active Substance: HYDROXYZINE HYDROCHLORIDE
  19. BUMEX [Concomitant]
     Active Substance: BUMETANIDE
  20. FARXIGA [Concomitant]
     Active Substance: DAPAGLIFLOZIN PROPANEDIOL
  21. LETAIRIS [Concomitant]
     Active Substance: AMBRISENTAN
  22. AMBRISENTAN [Suspect]
     Active Substance: AMBRISENTAN
     Dosage: ?          OTHER STRENGTH:N/A;QUANTITY:1 N/A;OTHER FREQUENCY:N/A;OTHER ROUTE:/A?
  23. LIPITOR [Concomitant]
     Active Substance: ATORVASTATIN CALCIUM
  24. FOLIC ACID. [Concomitant]
     Active Substance: FOLIC ACID
  25. SPIRONOLACTONE. [Concomitant]
     Active Substance: SPIRONOLACTONE

REACTIONS (2)
  - Dizziness [None]
  - Fatigue [None]

NARRATIVE: CASE EVENT DATE: 20210818
